FAERS Safety Report 4539608-1 (Version None)
Quarter: 2004Q4

REPORT INFORMATION
  Report Type: 
  Country: None (occurrence: None)
  Receive Date: 20041223
  Receipt Date: 20041210
  Transmission Date: 20050328
  Serious: Yes (Hospitalization)
  Sender: FDA-Public Use
  Company Number: TCI2004A03013

PATIENT
  Age: 45 Year
  Sex: Female

DRUGS (11)
  1. ACTOS [Suspect]
     Indication: DIABETES MELLITUS NON-INSULIN-DEPENDENT
     Dosage: 15 MG (15 MG, 1, PER ORAL
     Route: 048
     Dates: start: 20040607
  2. LORAZEPAM [Suspect]
     Dosage: 3 MG (1 MG, 3 IN  PER ORAL
     Route: 048
  3. PAROXETINE HYDROCHLORIDE [Concomitant]
  4. RISPERIDONE [Concomitant]
  5. HYDROXYZINE HYDROCHLORIDE [Concomitant]
  6. CHINESE HERBAL MEDICINE (KAMISHOUYOUSAN) [Concomitant]
  7. BEZAFIBRATE [Concomitant]
  8. RABEPRAZOLE SODIUM [Concomitant]
  9. METFORMIN HCL [Concomitant]
  10. LAFUTIDINE [Concomitant]
  11. FLUTICASONE PROPIONATE [Concomitant]

REACTIONS (10)
  - ANAEMIA [None]
  - CARDIAC FAILURE [None]
  - CENTRAL-ALVEOLAR HYPOVENTILATION [None]
  - CEREBRAL DISORDER [None]
  - DIZZINESS [None]
  - DYSPNOEA [None]
  - EJECTION FRACTION DECREASED [None]
  - HYPOXIA [None]
  - PULMONARY CONGESTION [None]
  - SNORING [None]
